FAERS Safety Report 9235396 (Version 1)
Quarter: 2013Q2

REPORT INFORMATION
  Report Type: Spontaneous
  Country: US (occurrence: None)
  Receive Date: 20130416
  Receipt Date: 20130416
  Transmission Date: 20140414
  Serious: Yes (Disabling, Other)
  Sender: FDA-Public Use
  Company Number: None

PATIENT
  Age: 47 Year
  Sex: Female
  Weight: 88.45 kg

DRUGS (2)
  1. AVONEX [Suspect]
     Indication: MULTIPLE SCLEROSIS
     Dates: start: 200701, end: 201208
  2. EPIDURAL [Concomitant]

REACTIONS (5)
  - Hypertension [None]
  - Thyroid disorder [None]
  - Arthralgia [None]
  - Lethargy [None]
  - Skin disorder [None]
